FAERS Safety Report 5146067-7 (Version None)
Quarter: 2006Q4

REPORT INFORMATION
  Report Type: 
  Country: None (occurrence: None)
  Receive Date: 20061108
  Receipt Date: 20061106
  Transmission Date: 20070319
  Serious: Yes (Life-Threatening, Hospitalization)
  Sender: FDA-Public Use
  Company Number: TEU-02-044B

PATIENT
  Age: 46 Year
  Sex: Female

DRUGS (5)
  1. QUILONUM RETARD [Suspect]
     Route: 048
     Dates: start: 20060712, end: 20060725
  2. CITALOPRAM HYDROBROMIDE [Suspect]
     Route: 048
     Dates: start: 20060607, end: 20060725
  3. VENLAFAXINE HCL [Concomitant]
     Route: 048
     Dates: start: 20060405, end: 20060606
  4. METOPROLOL TARTRATE [Concomitant]
     Dosage: 47.5MG PER DAY
     Route: 048
     Dates: start: 20060601, end: 20060623
  5. TAVOR [Concomitant]
     Route: 048
     Dates: start: 20060606

REACTIONS (6)
  - DYSARTHRIA [None]
  - HYPERTENSION [None]
  - HYPOTENSION [None]
  - HYPOTHYROIDISM [None]
  - SINUS BRADYCARDIA [None]
  - SYNCOPE [None]
